FAERS Safety Report 4446888-X (Version None)
Quarter: 2004Q3

REPORT INFORMATION
  Report Type: 
  Country: None (occurrence: None)
  Receive Date: 20040908
  Receipt Date: 20040906
  Transmission Date: 20050211
  Serious: Yes (Other)
  Sender: FDA-Public Use
  Company Number: 200412639GDS

PATIENT
  Age: 79 Year
  Sex: Male

DRUGS (1)
  1. BUFFERIN 81 MG (ASPIRIN) (ACETYLSALICYLIC ACID) [Suspect]

REACTIONS (2)
  - CONJUNCTIVAL HAEMORRHAGE [None]
  - POST PROCEDURAL COMPLICATION [None]
